FAERS Safety Report 14147623 (Version 1)
Quarter: 2017Q4

REPORT INFORMATION
  Report Type: Spontaneous
  Country: US (occurrence: US)
  Receive Date: 20171031
  Receipt Date: 20171031
  Transmission Date: 20180321
  Serious: No
  Sender: FDA-Public Use
  Company Number: US-ROMARKLABS-2016-US-000073

PATIENT
  Age: 35 Year
  Sex: Female

DRUGS (5)
  1. ALINIA [Suspect]
     Active Substance: NITAZOXANIDE
     Indication: CRYPTOSPORIDIOSIS INFECTION
     Dosage: 1 TABLET EVERY 12 HOURS
     Route: 048
     Dates: start: 20160920
  2. IRON SUPPLEMENTS [Concomitant]
     Active Substance: IRON
  3. ZOLOFT [Concomitant]
     Active Substance: SERTRALINE HYDROCHLORIDE
     Route: 048
  4. MULTIVITAMINS [Concomitant]
     Active Substance: VITAMINS
     Route: 048
  5. PROBIOTICS [Concomitant]
     Active Substance: PROBIOTICS NOS

REACTIONS (3)
  - Diarrhoea [Not Recovered/Not Resolved]
  - Faeces discoloured [Not Recovered/Not Resolved]
  - Chromaturia [Not Recovered/Not Resolved]

NARRATIVE: CASE EVENT DATE: 20160920
